FAERS Safety Report 4515493-9 (Version None)
Quarter: 2004Q4

REPORT INFORMATION
  Report Type: 
  Country: None (occurrence: None)
  Receive Date: 20041126
  Receipt Date: 20041119
  Transmission Date: 20050328
  Serious: Yes (Other)
  Sender: FDA-Public Use
  Company Number: US-JNJFOC-20041008231

PATIENT

DRUGS (1)
  1. CHILDREN'S MOTRIN COLD [Suspect]
     Indication: NASOPHARYNGITIS
     Dosage: 5 ML, 1 IN 1 DAY, ORAL
     Route: 048
     Dates: start: 20041010, end: 20041012

REACTIONS (3)
  - ABDOMINAL PAIN [None]
  - DYSURIA [None]
  - URINARY RETENTION [None]
